FAERS Safety Report 20895784 (Version 7)
Quarter: 2025Q2

REPORT INFORMATION
  Report Type: Report from Study
  Country: CN (occurrence: CN)
  Receive Date: 20220531
  Receipt Date: 20250612
  Transmission Date: 20250716
  Serious: Yes (Hospitalization)
  Sender: ROCHE
  Company Number: CN-ROCHE-3039146

PATIENT
  Age: 63 Year
  Sex: Male
  Weight: 71 kg

DRUGS (24)
  1. ALECTINIB [Suspect]
     Active Substance: ALECTINIB
     Indication: Lung cancer metastatic
     Dosage: DOSE LAST STUDY DRUG ADMIN PRIOR AE/SAE: 600 MG?START DATE OF MOST RECENT DOSE OF STUDY DRUG PRIOR T
     Route: 048
     Dates: start: 20211022
  2. LACTULOSE [Concomitant]
     Active Substance: LACTULOSE
     Indication: Constipation
     Dosage: PREVENT CONSTIPATION
     Route: 048
     Dates: start: 20220110, end: 20220110
  3. MOMETASONE FUROATE [Concomitant]
     Active Substance: MOMETASONE FUROATE
     Route: 061
     Dates: start: 20220614, end: 20220714
  4. LORATADINE [Concomitant]
     Active Substance: LORATADINE
     Route: 048
     Dates: start: 20220614, end: 20220616
  5. LORATADINE [Concomitant]
     Active Substance: LORATADINE
     Route: 048
     Dates: start: 20230715, end: 20230717
  6. DESLORATADINE [Concomitant]
     Active Substance: DESLORATADINE
     Indication: Dermatitis allergic
     Route: 048
     Dates: start: 20220825, end: 20220831
  7. DESLORATADINE [Concomitant]
     Active Substance: DESLORATADINE
     Route: 048
     Dates: start: 20230718, end: 20230729
  8. DEER BLOOD CRYSTAL BODY [Concomitant]
     Route: 048
     Dates: start: 20231110, end: 20231110
  9. CELECOXIB [Concomitant]
     Active Substance: CELECOXIB
     Route: 048
     Dates: start: 20231110, end: 20231121
  10. CELECOXIB [Concomitant]
     Active Substance: CELECOXIB
     Route: 048
     Dates: start: 20241125, end: 20250103
  11. CELECOXIB [Concomitant]
     Active Substance: CELECOXIB
     Route: 048
     Dates: start: 20240304, end: 20240501
  12. CELECOXIB [Concomitant]
     Active Substance: CELECOXIB
     Route: 048
     Dates: start: 20250303, end: 20250312
  13. CALCIUM CARBONATE\CHOLECALCIFEROL [Concomitant]
     Active Substance: CALCIUM CARBONATE\CHOLECALCIFEROL
     Route: 048
     Dates: start: 202301, end: 202301
  14. PHLOROGLUCINOL [Concomitant]
     Active Substance: PHLOROGLUCINOL
     Route: 042
     Dates: start: 20240624, end: 20240624
  15. KETOROLAC TROMETHAMINE [Concomitant]
     Active Substance: KETOROLAC TROMETHAMINE
     Route: 042
     Dates: start: 20240624, end: 20240624
  16. DROTAVERINE [Concomitant]
     Active Substance: DROTAVERINE
     Route: 048
     Dates: start: 20240625, end: 20240627
  17. AMLODIPINE [Concomitant]
     Active Substance: AMLODIPINE BESYLATE
     Indication: Hypertension
     Route: 048
     Dates: start: 2000
  18. GLUCOSAMINE HYDROCHLORIDE [Concomitant]
     Active Substance: GLUCOSAMINE HYDROCHLORIDE
     Route: 048
     Dates: start: 20241126, end: 20250103
  19. GLUCOSAMINE HYDROCHLORIDE [Concomitant]
     Active Substance: GLUCOSAMINE HYDROCHLORIDE
     Route: 048
     Dates: start: 20241015, end: 20241025
  20. ETORICOXIB [Concomitant]
     Active Substance: ETORICOXIB
     Route: 048
     Dates: start: 20241015, end: 20241025
  21. EPERISONE HYDROCHLORIDE [Concomitant]
     Active Substance: EPERISONE HYDROCHLORIDE
     Route: 048
     Dates: start: 20241016, end: 20241018
  22. DICLOFENAC DIETHYLAMINE [Concomitant]
     Active Substance: DICLOFENAC DIETHYLAMINE
     Indication: Analgesic therapy
     Route: 061
     Dates: start: 20241018, end: 20241018
  23. FLURBIPROFEN CATAPLASMS [Concomitant]
     Dosage: 1 OTHER
     Route: 061
     Dates: start: 20250312
  24. LOXOPROFEN SODIUM CATAPLASMS [Concomitant]
     Indication: Analgesic therapy
     Dosage: 1 OTHER
     Route: 061
     Dates: start: 20241018, end: 20241018

REACTIONS (9)
  - Back pain [Recovered/Resolved]
  - Neck pain [Recovered/Resolved]
  - Blood alkaline phosphatase increased [Recovered/Resolved]
  - Aspartate aminotransferase increased [Recovered/Resolved]
  - Anaemia [Not Recovered/Not Resolved]
  - SARS-CoV-2 test positive [Recovered/Resolved]
  - Rash [Recovered/Resolved]
  - Abdominal pain [Recovered/Resolved]
  - Hepatic function abnormal [Recovered/Resolved]

NARRATIVE: CASE EVENT DATE: 20211118
